FAERS Safety Report 6977581-7 (Version None)
Quarter: 2010Q3

REPORT INFORMATION
  Report Type: 
  Country: None (occurrence: None)
  Receive Date: 20100913
  Receipt Date: 20100902
  Transmission Date: 20110219
  Serious: Yes (Hospitalization, Other)
  Sender: FDA-Public Use
  Company Number: US-BIOGENIDEC-2010BI023985

PATIENT
  Age: 57 Year
  Sex: Female

DRUGS (13)
  1. TYSABRI [Suspect]
     Indication: MULTIPLE SCLEROSIS
     Route: 042
     Dates: start: 20081215, end: 20100512
  2. AMITIZA [Concomitant]
  3. ASPIRIN [Concomitant]
  4. DEXEDRINE [Concomitant]
  5. DOXYCYCLINE HYCLATE [Concomitant]
     Route: 048
  6. LORTAB [Concomitant]
     Route: 048
  7. LUNESTA [Concomitant]
  8. MIRALAX [Concomitant]
  9. NEXIUM [Concomitant]
  10. NUVIGIL [Concomitant]
  11. PROTONIX [Concomitant]
  12. ZANAFLEX [Concomitant]
  13. COPAXONE [Concomitant]

REACTIONS (6)
  - BRAIN OEDEMA [None]
  - CATARACT [None]
  - DIABETES MELLITUS [None]
  - ORAL HERPES [None]
  - PROGRESSIVE MULTIFOCAL LEUKOENCEPHALOPATHY [None]
  - ULCER [None]
